FAERS Safety Report 10264044 (Version 3)
Quarter: 2014Q3

REPORT INFORMATION
  Report Type: Spontaneous
  Country: US (occurrence: US)
  Receive Date: 20140627
  Receipt Date: 20140724
  Transmission Date: 20150326
  Serious: No
  Sender: FDA-Public Use
  Company Number: US-BIOGENIDEC-2014BI060918

PATIENT
  Age: 46 Year
  Sex: Female

DRUGS (7)
  1. VITAMIN C [Concomitant]
     Active Substance: ASCORBIC ACID
     Indication: MULTIPLE SCLEROSIS
  2. VITAMIN E [Concomitant]
     Active Substance: .ALPHA.-TOCOPHEROL
     Indication: MULTIPLE SCLEROSIS
  3. VITAMIN B [Concomitant]
     Active Substance: VITAMIN B
     Indication: MULTIPLE SCLEROSIS
  4. AVONEX [Suspect]
     Active Substance: INTERFERON BETA-1A
     Indication: RELAPSING-REMITTING MULTIPLE SCLEROSIS
     Route: 030
     Dates: start: 200002, end: 200501
  5. MAGNESIUM [Concomitant]
     Active Substance: MAGNESIUM
     Indication: MULTIPLE SCLEROSIS
  6. TIZANIDINE [Concomitant]
     Active Substance: TIZANIDINE
     Indication: MULTIPLE SCLEROSIS
  7. CALCIUM [Concomitant]
     Active Substance: CALCIUM
     Indication: MULTIPLE SCLEROSIS

REACTIONS (7)
  - Memory impairment [Unknown]
  - Multiple sclerosis relapse [Unknown]
  - Motor dysfunction [Unknown]
  - Muscle spasticity [Unknown]
  - Depression [Unknown]
  - Cognitive disorder [Unknown]
  - Urinary retention [Unknown]

NARRATIVE: CASE EVENT DATE: 200005
